FAERS Safety Report 11167066 (Version 1)
Quarter: 2015Q2

REPORT INFORMATION
  Report Type: Spontaneous
  Country: US (occurrence: None)
  Receive Date: 20150604
  Receipt Date: 20150604
  Transmission Date: 20150821
  Serious: Yes (Hospitalization)
  Sender: FDA-Public Use
  Company Number: None

PATIENT
  Age: 65 Year
  Sex: Male
  Weight: 47.32 kg

DRUGS (13)
  1. ERGOCALCIFEROL (ERGOCALCIFEROL) [Concomitant]
     Active Substance: ERGOCALCIFEROL
  2. RANITIDINE (ZANTAC) [Concomitant]
  3. FUROSAMIDE (LASIX) [Concomitant]
  4. OXYCODONE [Concomitant]
     Active Substance: OXYCODONE
  5. RIFAXIMIN (XIFAXAN) [Concomitant]
  6. DOLOPHINE [Concomitant]
     Active Substance: METHADONE HYDROCHLORIDE
  7. SPIRONOLACTONE (ALDACTONE) [Concomitant]
  8. NADOLOL (CORGARD) [Concomitant]
  9. LEDIPASVIR-SOFOSBUVIR [Suspect]
     Active Substance: LEDIPASVIR\SOFOSBUVIR
     Indication: HEPATITIS C
     Route: 048
     Dates: start: 20150401
  10. TRAMADOL (ULTRAM) [Concomitant]
  11. OXYCODONE (ROXICODONE) [Concomitant]
  12. AMMONIUM LACTATE. [Concomitant]
     Active Substance: AMMONIUM LACTATE
  13. BISMUTH TRIBROM-PETROLATUM (XEROFORM) [Concomitant]

REACTIONS (3)
  - Cellulitis [None]
  - Blister [None]
  - Acute kidney injury [None]

NARRATIVE: CASE EVENT DATE: 20150515
